FAERS Safety Report 26126548 (Version 2)
Quarter: 2025Q4

REPORT INFORMATION
  Report Type: Spontaneous
  Country: EU (occurrence: EU)
  Receive Date: 20251205
  Receipt Date: 20251211
  Transmission Date: 20260119
  Serious: No
  Sender: PFIZER
  Company Number: EU-PFIZER INC-202500237020

PATIENT
  Age: 78 Year
  Sex: Female

DRUGS (2)
  1. SOMAVERT [Suspect]
     Active Substance: PEGVISOMANT
     Dosage: UNK
  2. SOMAVERT [Suspect]
     Active Substance: PEGVISOMANT
     Dosage: UNK

REACTIONS (2)
  - Intentional product misuse [Unknown]
  - Device breakage [Unknown]
